FAERS Safety Report 15462293 (Version 1)
Quarter: 2018Q4

REPORT INFORMATION
  Report Type: Spontaneous
  Country: US (occurrence: US)
  Receive Date: 20181001
  Receipt Date: 20181001
  Transmission Date: 20190204
  Serious: Yes (Life-Threatening, Hospitalization)
  Sender: FDA-Public Use
  Company Number: None

PATIENT
  Age: 81 Year
  Sex: Female

DRUGS (2)
  1. AGGRENOX [Suspect]
     Active Substance: ASPIRIN\DIPYRIDAMOLE
  2. WARFARIN [Suspect]
     Active Substance: WARFARIN

REACTIONS (1)
  - Basal ganglia haemorrhage [None]

NARRATIVE: CASE EVENT DATE: 20171223
